FAERS Safety Report 12638861 (Version 4)
Quarter: 2016Q4

REPORT INFORMATION
  Report Type: Report from Study
  Country: None (occurrence: US)
  Receive Date: 20160809
  Receipt Date: 20161017
  Transmission Date: 20170207
  Serious: Yes (Hospitalization, Other)
  Sender: FDA-Public Use
  Company Number: US-ABBVIE-16K-163-1692568-00

PATIENT
  Age: 62 Year
  Sex: Female

DRUGS (2)
  1. HUMIRA [Suspect]
     Active Substance: ADALIMUMAB
     Indication: CROHN^S DISEASE
     Route: 058
     Dates: start: 20150811, end: 201601
  2. HUMIRA [Suspect]
     Active Substance: ADALIMUMAB
     Route: 058
     Dates: start: 201603

REACTIONS (7)
  - Gallbladder operation [Recovered/Resolved]
  - Injection site swelling [Recovering/Resolving]
  - Injection site warmth [Recovering/Resolving]
  - Crohn^s disease [Not Recovered/Not Resolved]
  - Injection site pruritus [Recovering/Resolving]
  - Electrolyte imbalance [Not Recovered/Not Resolved]
  - Injection site erythema [Recovering/Resolving]

NARRATIVE: CASE EVENT DATE: 2015
